FAERS Safety Report 10570281 (Version 1)
Quarter: 2014Q4

REPORT INFORMATION
  Report Type: Spontaneous
  Country: US (occurrence: None)
  Receive Date: 20141106
  Receipt Date: 20141106
  Transmission Date: 20150529
  Serious: Yes (Life-Threatening, Hospitalization)
  Sender: FDA-Public Use
  Company Number: None

PATIENT
  Sex: Male
  Weight: 127.01 kg

DRUGS (2)
  1. SERZONE [Suspect]
     Active Substance: NEFAZODONE HYDROCHLORIDE
     Indication: DEPRESSION
     Route: 048
     Dates: start: 1993, end: 1999
  2. ATIVAN [Suspect]
     Active Substance: LORAZEPAM
     Indication: ANXIETY

REACTIONS (8)
  - Seizure [None]
  - Dysarthria [None]
  - Intentional overdose [None]
  - Impaired driving ability [None]
  - Homicidal ideation [None]
  - Anxiety [None]
  - Suicide attempt [None]
  - Feeling abnormal [None]

NARRATIVE: CASE EVENT DATE: 1999
